FAERS Safety Report 10842083 (Version 1)
Quarter: 2015Q1

REPORT INFORMATION
  Report Type: Spontaneous
  Country: DE (occurrence: DE)
  Receive Date: 20150220
  Receipt Date: 20150220
  Transmission Date: 20150721
  Serious: Yes (Hospitalization, Other)
  Sender: FDA-Public Use
  Company Number: DE-TEVA-541312GER

PATIENT
  Sex: Female

DRUGS (5)
  1. L-DOPA COMP. B 50/12.5 [Interacting]
     Active Substance: BENSERAZIDE\LEVODOPA
     Indication: PARKINSON^S DISEASE
     Dosage: 1DF CONTAINS LEVODOPA 50 MG AND BENSERAZIDE 12.5MG
     Dates: start: 201202
  2. CLARIUM 50 MG [Interacting]
     Active Substance: PIRIBEDIL
     Indication: PARKINSON^S DISEASE
     Dates: start: 201202
  3. XARELTO [Interacting]
     Active Substance: RIVAROXABAN
     Indication: CEREBROVASCULAR ACCIDENT PROPHYLAXIS
  4. AZILECT [Suspect]
     Active Substance: RASAGILINE MESYLATE
     Indication: PARKINSON^S DISEASE
     Route: 048
     Dates: start: 201202
  5. TRIVASTAL [Suspect]
     Active Substance: PIRIBEDIL
     Indication: PARKINSON^S DISEASE

REACTIONS (12)
  - Age-related macular degeneration [Unknown]
  - Atrial fibrillation [None]
  - Neoplasm [Unknown]
  - Arthralgia [Unknown]
  - Myalgia [Unknown]
  - Blood pressure decreased [Unknown]
  - Micturition urgency [Unknown]
  - Basal cell carcinoma [Unknown]
  - Oedema peripheral [Unknown]
  - Drug interaction [Unknown]
  - Cataract [Unknown]
  - Visual acuity reduced [Unknown]

NARRATIVE: CASE EVENT DATE: 201211
